FAERS Safety Report 8310119-0 (Version None)
Quarter: 2012Q2

REPORT INFORMATION
  Report Type: 
  Country: None (occurrence: None)
  Receive Date: 20120425
  Receipt Date: 20120417
  Transmission Date: 20120825
  Serious: Yes (Hospitalization, Other)
  Sender: FDA-Public Use
  Company Number: US-BAYER-2011-114217

PATIENT
  Age: 21 Year
  Sex: Female

DRUGS (2)
  1. YAZ [Suspect]
     Indication: ACNE
     Dosage: UNK
     Dates: start: 20080201, end: 20090501
  2. YAZ [Suspect]
     Indication: DYSMENORRHOEA

REACTIONS (3)
  - PAIN [None]
  - BILE DUCT STONE [None]
  - CHOLELITHIASIS [None]
